FAERS Safety Report 7700691-3 (Version None)
Quarter: 2011Q3

REPORT INFORMATION
  Report Type: 
  Country: None (occurrence: None)
  Receive Date: 20110822
  Receipt Date: 20110811
  Transmission Date: 20111222
  Serious: Yes (Congenital Anomaly)
  Sender: FDA-Public Use
  Company Number: CA-JNJFOC-20110807790

PATIENT

DRUGS (3)
  1. REMICADE [Suspect]
     Indication: MATERNAL EXPOSURE DURING PREGNANCY
     Route: 064
  2. IMURAN [Concomitant]
  3. VITAMINS NOS [Concomitant]

REACTIONS (1)
  - SINGLE UMBILICAL ARTERY [None]
